FAERS Safety Report 23263717 (Version 1)
Quarter: 2023Q4

REPORT INFORMATION
  Report Type: Spontaneous
  Country: US (occurrence: US)
  Receive Date: 20231205
  Receipt Date: 20231205
  Transmission Date: 20240110
  Serious: No
  Sender: FDA-Public Use
  Company Number: US-SA-SAC20231124001231

PATIENT
  Age: 43 Year
  Sex: Female

DRUGS (1)
  1. DUPIXENT [Suspect]
     Active Substance: DUPILUMAB
     Indication: Dermatitis atopic
     Dosage: 300 MG, QOW
     Route: 058

REACTIONS (11)
  - Blister [Unknown]
  - Dry skin [Unknown]
  - Pain [Recovering/Resolving]
  - Fatigue [Recovering/Resolving]
  - Skin weeping [Unknown]
  - Skin fissures [Unknown]
  - Sleep disorder [Unknown]
  - Skin haemorrhage [Unknown]
  - Pruritus [Unknown]
  - Injection site bruising [Recovering/Resolving]
  - Dermatitis atopic [Unknown]

NARRATIVE: CASE EVENT DATE: 20231101
